FAERS Safety Report 7145340-0 (Version None)
Quarter: 2010Q4

REPORT INFORMATION
  Report Type: 
  Country: None (occurrence: None)
  Receive Date: 20101122
  Receipt Date: 20101115
  Transmission Date: 20110411
  Serious: Yes (Other)
  Sender: FDA-Public Use
  Company Number: 2010SP039970

PATIENT
  Age: 76 Year
  Sex: Female
  Weight: 58 kg

DRUGS (6)
  1. ESLAX (ROCURONIUM BROMDIE /01245702/) [Suspect]
     Indication: NEUROMUSCULAR BLOCKING THERAPY
     Dosage: 35 MG;IV ; 10 MG;IV
     Route: 042
  2. CLINDAMYCIN [Suspect]
     Indication: PYOTHORAX
     Dosage: 600 MG;QD;IV ; 1800 MG;IV ; 600 MG;IV
     Route: 042
  3. FENTANYL [Suspect]
     Indication: INDUCTION OF ANAESTHESIA
     Dosage: 100 MCG;IV
     Route: 042
  4. PROPOFOL [Suspect]
     Indication: INDUCTION OF ANAESTHESIA
     Dosage: 80 MG;IV
     Route: 042
  5. SEVOFLURANE [Suspect]
     Indication: MAINTENANCE OF ANAESTHESIA
     Dosage: 1 PCT;INH
     Route: 055
  6. REMIFENTANYL (REMIFENTANYL) [Suspect]
     Indication: MAINTENANCE OF ANAESTHESIA
     Dosage: 0.2 MG/KG;IV
     Route: 042

REACTIONS (2)
  - ENDOTRACHEAL INTUBATION COMPLICATION [None]
  - NEUROMUSCULAR BLOCK PROLONGED [None]
